FAERS Safety Report 13683845 (Version 6)
Quarter: 2017Q3

REPORT INFORMATION
  Report Type: Report from Study
  Country: US (occurrence: US)
  Receive Date: 20170623
  Receipt Date: 20170929
  Transmission Date: 20171127
  Serious: Yes (Other)
  Sender: FDA-Public Use
  Company Number: PHEH2017US019005

PATIENT
  Sex: Male

DRUGS (1)
  1. AFINITOR [Suspect]
     Active Substance: EVEROLIMUS
     Indication: ANGIOMYOLIPOMA
     Dosage: 10 MG, QD
     Route: 048
     Dates: start: 20170616

REACTIONS (8)
  - Dehydration [Unknown]
  - Hypersomnia [Unknown]
  - Toothache [Unknown]
  - Blood sodium decreased [Unknown]
  - Drug administration error [Unknown]
  - Fatigue [Unknown]
  - Seizure [Unknown]
  - Stomatitis [Unknown]
